FAERS Safety Report 6841418-7 (Version None)
Quarter: 2010Q3

REPORT INFORMATION
  Report Type: 
  Country: None (occurrence: None)
  Receive Date: 20100714
  Receipt Date: 20070702
  Transmission Date: 20110219
  Serious: No
  Sender: FDA-Public Use
  Company Number: US-PFIZER INC-2007056007

PATIENT
  Sex: Female
  Weight: 62.1 kg

DRUGS (7)
  1. CHANTIX [Suspect]
     Indication: SMOKING CESSATION THERAPY
     Route: 048
     Dates: start: 20070501
  2. ALPRAZOLAM [Concomitant]
     Indication: MUSCLE STRAIN
  3. OMEPRAZOLE [Concomitant]
     Indication: GALLBLADDER OPERATION
  4. CLARITIN [Concomitant]
     Indication: HYPERSENSITIVITY
  5. GEMFIBROZIL [Concomitant]
     Indication: BLOOD TRIGLYCERIDES INCREASED
  6. ALTACE [Concomitant]
     Indication: HYPERTENSION
  7. EXTRA STRENGTH TYLENOL [Concomitant]
     Indication: PAIN

REACTIONS (4)
  - BACK PAIN [None]
  - GASTRITIS [None]
  - HEADACHE [None]
  - NAUSEA [None]
